FAERS Safety Report 25669467 (Version 1)
Quarter: 2025Q3

REPORT INFORMATION
  Report Type: Spontaneous
  Country: US (occurrence: US)
  Receive Date: 20250812
  Receipt Date: 20250812
  Transmission Date: 20251020
  Serious: Yes (Other)
  Sender: COOPERSURGICAL
  Company Number: US-COOPERSURGICAL, INC.-2025CPS000637

PATIENT
  Age: 20 Year
  Sex: Female
  Weight: 133.33 kg

DRUGS (5)
  1. PARAGARD T 380A [Suspect]
     Active Substance: COPPER
     Route: 015
     Dates: start: 20161223
  2. COVID-19 VACCINE NOS [Suspect]
     Active Substance: COVID-19 VACCINE
     Dates: start: 2021, end: 2021
  3. COVID-19 VACCINE NOS [Suspect]
     Active Substance: COVID-19 VACCINE
     Dates: start: 2021, end: 2021
  4. RISPERDAL [Concomitant]
     Active Substance: RISPERIDONE
     Dosage: 1 MG, 2X/DAY
     Dates: start: 201604, end: 202211
  5. ZOLOFT [Concomitant]
     Active Substance: SERTRALINE HYDROCHLORIDE
     Dosage: 75 MG, 1X/DAY
     Route: 048

REACTIONS (16)
  - Uterine polyp [Unknown]
  - Surgery [Recovered/Resolved]
  - Device breakage [Recovered/Resolved]
  - Foreign body in reproductive tract [Recovered/Resolved]
  - Complication of device removal [Recovered/Resolved]
  - Embedded device [Recovered/Resolved]
  - Endometritis [Unknown]
  - Procedural pain [Recovered/Resolved]
  - Emotional distress [Unknown]
  - Sensory disturbance [Recovered/Resolved]
  - Device dislocation [Recovered/Resolved]
  - Abnormal uterine bleeding [Recovering/Resolving]
  - Menstruation irregular [Unknown]
  - Muscle spasms [Unknown]
  - Heavy menstrual bleeding [Recovering/Resolving]
  - Device expulsion [Recovered/Resolved]

NARRATIVE: CASE EVENT DATE: 20170101
